FAERS Safety Report 17922846 (Version 1)
Quarter: 2020Q2

REPORT INFORMATION
  Report Type: Spontaneous
  Country: CA (occurrence: CA)
  Receive Date: 20200622
  Receipt Date: 20200622
  Transmission Date: 20200714
  Serious: Yes (Life-Threatening, Other)
  Sender: FDA-Public Use
  Company Number: CA-TEVA-2020-CA-1790834

PATIENT
  Age: 44 Year
  Sex: Female

DRUGS (3)
  1. CELECOXIB. [Suspect]
     Active Substance: CELECOXIB
     Indication: MUSCULOSKELETAL PAIN
     Route: 065
  2. MEFENAMIC ACID. [Concomitant]
     Active Substance: MEFENAMIC ACID
  3. ACETAMINOPHEN. [Concomitant]
     Active Substance: ACETAMINOPHEN

REACTIONS (18)
  - Heart rate irregular [Unknown]
  - Pruritus [Unknown]
  - Abdominal discomfort [Unknown]
  - Disturbance in attention [Unknown]
  - Feeling abnormal [Unknown]
  - Diarrhoea [Unknown]
  - Dizziness [Unknown]
  - Hyperhidrosis [Unknown]
  - Vomiting [Unknown]
  - Tremor [Unknown]
  - Skin discolouration [Unknown]
  - Chills [Unknown]
  - Erythema [Unknown]
  - Pain [Unknown]
  - Asthenia [Unknown]
  - Confusional state [Unknown]
  - Loss of consciousness [Unknown]
  - Feeling cold [Unknown]
